FAERS Safety Report 4860116-2 (Version None)
Quarter: 2005Q4

REPORT INFORMATION
  Report Type: 
  Country: None (occurrence: None)
  Receive Date: 20051219
  Receipt Date: 20051005
  Transmission Date: 20060501
  Serious: Yes (Hospitalization)
  Sender: FDA-Public Use
  Company Number: US-MERCK-0510USA03455

PATIENT
  Age: 75 Year
  Sex: Female
  Weight: 80 kg

DRUGS (6)
  1. VIOXX [Suspect]
     Route: 048
     Dates: start: 20030401
  2. ATENOLOL [Concomitant]
     Route: 065
  3. [THERAPY UNSPECIFIED] [Concomitant]
     Route: 065
  4. EVISTA [Concomitant]
     Route: 065
  5. IMDUR [Concomitant]
     Route: 065
  6. BIAXIN [Concomitant]
     Route: 065

REACTIONS (10)
  - ANGINA PECTORIS [None]
  - AORTIC VALVE SCLEROSIS [None]
  - CARDIOVASCULAR DISORDER [None]
  - CORONARY ARTERY STENOSIS [None]
  - FEMUR FRACTURE [None]
  - MITRAL VALVE INCOMPETENCE [None]
  - MYOCARDIAL INFARCTION [None]
  - PULMONARY HYPERTENSION [None]
  - ROAD TRAFFIC ACCIDENT [None]
  - TRICUSPID VALVE INCOMPETENCE [None]
